FAERS Safety Report 7335789-5 (Version None)
Quarter: 2011Q1

REPORT INFORMATION
  Report Type: 
  Country: None (occurrence: None)
  Receive Date: 20110302
  Receipt Date: 20110302
  Transmission Date: 20110831
  Serious: Yes (Hospitalization, Other)
  Sender: FDA-Public Use
  Company Number: None

PATIENT
  Age: 47 Year
  Sex: Male
  Weight: 72.57 kg

DRUGS (10)
  1. NIFEDIPINE [Concomitant]
  2. METOPROLOL SUCCINATE [Concomitant]
  3. ENALAPRIL [Concomitant]
  4. CALCIUM ACETATE [Concomitant]
  5. NPLATE [Suspect]
     Indication: IDIOPATHIC THROMBOCYTOPENIC PURPURA
     Dosage: 250MCG ONCE SQ
     Dates: start: 20110224, end: 20110224
  6. ISOSORBIDE MONONITRATE [Concomitant]
  7. SEVALAMER [Concomitant]
  8. INSULIN DETEMIR [Concomitant]
  9. NPLATE [Suspect]
     Indication: IDIOPATHIC THROMBOCYTOPENIC PURPURA
     Dosage: 70MCG ONCE SQ
     Dates: start: 20110210, end: 20110210
  10. DANAZOL [Concomitant]

REACTIONS (1)
  - PANCREATITIS [None]
